FAERS Safety Report 7644472 (Version 5)
Quarter: 2017Q1

REPORT INFORMATION
  Report Type: Spontaneous
  Country: FR (occurrence: FR)
  Receive Date: 20101028
  Receipt Date: 20170209
  Transmission Date: 20170429
  Serious: Yes (Death, Hospitalization, Other)
  Sender: FDA-Public Use
  Company Number: FR-CELGENEUS-056-50794-10101837

PATIENT

DRUGS (1)
  1. AZACITIDINE. [Suspect]
     Active Substance: AZACITIDINE
     Indication: PRODUCT USED FOR UNKNOWN INDICATION
     Dosage: 75 MILLIGRAM/SQ. METER
     Route: 058

REACTIONS (10)
  - Polychondritis [Unknown]
  - Sepsis [Fatal]
  - Cerebrovascular accident [Unknown]
  - Haemorrhage [Fatal]
  - Cytopenia [Unknown]
  - Treatment failure [Unknown]
  - Disease progression [Fatal]
  - Death [Fatal]
  - Hepatic failure [Unknown]
  - Therapy non-responder [Unknown]
